FAERS Safety Report 6313567-3 (Version None)
Quarter: 2009Q3

REPORT INFORMATION
  Report Type: 
  Country: None (occurrence: None)
  Receive Date: 20090814
  Receipt Date: 20090804
  Transmission Date: 20100115
  Serious: Yes (Hospitalization, Disabling)
  Sender: FDA-Public Use
  Company Number: GXKR2009GB08867

PATIENT
  Age: 73 Year
  Sex: Female

DRUGS (10)
  1. OMEPRAZOLE [Suspect]
     Indication: DYSPEPSIA
     Dosage: 20 MG, ORAL
     Route: 048
     Dates: start: 20081114, end: 20090710
  2. MOXONIDINE (MOXONIDINE) [Suspect]
     Indication: HYPERTENSION
     Dosage: 200 UG, ORAL
     Route: 048
     Dates: start: 20081022, end: 20090710
  3. AMLODIPINE [Concomitant]
  4. ASPIRIN [Concomitant]
  5. ENALAPRIL MALEATE [Concomitant]
  6. INDAPAMIDE [Concomitant]
  7. LANTUS [Concomitant]
  8. LATANOPROST (LATANOPROST) , 0.005 % [Concomitant]
  9. NOVOLOG [Concomitant]
  10. TIMOLOL MALEATE [Concomitant]

REACTIONS (1)
  - RENAL IMPAIRMENT [None]
